FAERS Safety Report 6451158-4 (Version None)
Quarter: 2009Q4

REPORT INFORMATION
  Report Type: 
  Country: None (occurrence: None)
  Receive Date: 20091123
  Receipt Date: 20091111
  Transmission Date: 20100525
  Serious: Yes (Hospitalization, Other)
  Sender: FDA-Public Use
  Company Number: US-SANOFI-AVENTIS-A03200900742

PATIENT
  Age: 80 Year
  Sex: Female
  Weight: 64.85 kg

DRUGS (8)
  1. CLOPIDOGREL BISULFATE [Suspect]
     Dosage: UNIT DOSE: 75 MG
     Route: 048
     Dates: start: 20031201, end: 20090125
  2. CLOPIDOGREL BISULFATE [Suspect]
     Indication: PROPHYLAXIS
     Dosage: UNIT DOSE: 75 MG
     Route: 048
     Dates: start: 20031201, end: 20090125
  3. CLOPIDOGREL BISULFATE [Suspect]
     Dosage: UNIT DOSE: 75 MG
     Route: 048
     Dates: start: 20031201, end: 20090125
  4. CLOPIDOGREL BISULFATE [Suspect]
     Dosage: UNIT DOSE: 75 MG
     Route: 048
     Dates: start: 20090101, end: 20091029
  5. CLOPIDOGREL BISULFATE [Suspect]
     Dosage: UNIT DOSE: 75 MG
     Route: 048
     Dates: start: 20090101, end: 20091029
  6. CLOPIDOGREL BISULFATE [Suspect]
     Dosage: UNIT DOSE: 75 MG
     Route: 048
     Dates: start: 20090101, end: 20091029
  7. ASPIRIN [Suspect]
     Route: 065
     Dates: start: 20050101, end: 20090125
  8. ZOCOR [Concomitant]
     Indication: DRUG USE FOR UNKNOWN INDICATION
     Route: 065

REACTIONS (6)
  - DEHYDRATION [None]
  - EYE HAEMORRHAGE [None]
  - GASTRIC ULCER HAEMORRHAGE [None]
  - HYPOTENSION [None]
  - MELAENA [None]
  - VAGINAL HAEMORRHAGE [None]
